FAERS Safety Report 7377442-8 (Version None)
Quarter: 2011Q1

REPORT INFORMATION
  Report Type: 
  Country: None (occurrence: None)
  Receive Date: 20110328
  Receipt Date: 20110318
  Transmission Date: 20110831
  Serious: Yes (Other)
  Sender: FDA-Public Use
  Company Number: US-PFIZER INC-2011008703

PATIENT
  Sex: Female
  Weight: 58 kg

DRUGS (9)
  1. CYCRIN [Suspect]
     Dosage: UNK
  2. PREMPRO [Suspect]
     Indication: HORMONE REPLACEMENT THERAPY
     Dosage: 0.625/5MG
     Dates: start: 19990101, end: 19991001
  3. PROGESTERONE [Suspect]
     Indication: HORMONE REPLACEMENT THERAPY
     Dosage: UNK
  4. TRIEST [Suspect]
     Indication: OSTEOPOROSIS
     Dosage: UNK
     Dates: start: 19991001, end: 20020401
  5. PROVERA [Suspect]
     Indication: HORMONE REPLACEMENT THERAPY
     Dosage: 100 MG, UNK
     Dates: start: 19931101, end: 19940601
  6. MEDROXYPROGESTERONE ACETATE [Suspect]
     Indication: HORMONE REPLACEMENT THERAPY
     Dosage: 100 MG, UNK
     Dates: start: 19931101, end: 19940601
  7. TRIEST [Suspect]
     Indication: CARDIAC DISORDER
  8. TRIEST [Suspect]
     Indication: HORMONE REPLACEMENT THERAPY
  9. PREMARIN [Suspect]
     Indication: HORMONE REPLACEMENT THERAPY
     Dosage: UNK
     Dates: start: 19931101, end: 19940601

REACTIONS (1)
  - BREAST CANCER [None]
